FAERS Safety Report 9906799 (Version 1)
Quarter: 2014Q1

REPORT INFORMATION
  Report Type: Not Available
  Country: CH (occurrence: CH)
  Receive Date: 20140218
  Receipt Date: 20140218
  Transmission Date: 20141002
  Serious: Yes (Hospitalization)
  Sender: FDA-Public Use
  Company Number: CH-NAPPMUNDI-DEU-2014-0013641

PATIENT
  Age: 59 Year
  Sex: Female

DRUGS (12)
  1. SEVREDOL [Suspect]
     Indication: PRODUCT USED FOR UNKNOWN INDICATION
     Dosage: 5 MG, Q4H PRN
     Route: 048
     Dates: start: 20140108
  2. KEPPRA [Suspect]
     Indication: CONVULSION
     Dosage: 1000 MG, BID
     Route: 048
     Dates: start: 20140116
  3. KEPPRA [Suspect]
     Dosage: 500 MG, BID
     Route: 048
  4. KEPPRA [Suspect]
     Dosage: 1000 MG, SINGLE
     Route: 042
     Dates: start: 20140103
  5. THIOPHENICOL /00210601/ [Suspect]
     Indication: PRODUCT USED FOR UNKNOWN INDICATION
     Dosage: 500 MG, QID
     Route: 048
     Dates: start: 20140121, end: 20140209
  6. ANXIOLIT [Suspect]
     Indication: PRODUCT USED FOR UNKNOWN INDICATION
     Dosage: 7.5 MG, DAILY
     Route: 048
  7. ANXIOLIT [Suspect]
     Dosage: 7.5 MG, Q12H PRN
     Route: 048
  8. COVERSUM N [Suspect]
     Indication: PRODUCT USED FOR UNKNOWN INDICATION
     Dosage: 5 MG, DAILY
     Route: 048
     Dates: start: 20140122
  9. COVERSUM N [Suspect]
     Dosage: 2.5 MG, DAILY
     Route: 048
     Dates: start: 20140114
  10. DAFALGAN [Suspect]
     Indication: PRODUCT USED FOR UNKNOWN INDICATION
     Dosage: 1000 MG, PRN
     Route: 048
     Dates: start: 20140108
  11. DEXAMETHASONE [Concomitant]
     Dosage: 1 MG, DAILY
     Route: 048
     Dates: start: 201312, end: 20140129
  12. INSULATARD [Concomitant]
     Dosage: 10 IU, DAILY
     Route: 058

REACTIONS (1)
  - Thrombocytopenia [Not Recovered/Not Resolved]
